FAERS Safety Report 9933215 (Version 2)
Quarter: 2014Q1

REPORT INFORMATION
  Report Type: Report from Study
  Country: US (occurrence: US)
  Receive Date: 20140228
  Receipt Date: 20140228
  Transmission Date: 20141002
  Serious: No
  Sender: FDA-Public Use
  Company Number: US-MYLANLABS-2013S1000573

PATIENT
  Age: 19 Year
  Sex: Female
  Weight: 67.13 kg

DRUGS (2)
  1. AMNESTEEM CAPSULES [Suspect]
     Indication: ACNE CYSTIC
     Route: 048
     Dates: start: 20121105, end: 20121215
  2. MYORISAN [Suspect]
     Indication: ACNE CYSTIC
     Route: 048

REACTIONS (4)
  - Dry skin [Recovering/Resolving]
  - Lip dry [Recovering/Resolving]
  - Chapped lips [Recovering/Resolving]
  - Lip haemorrhage [Not Recovered/Not Resolved]
